FAERS Safety Report 5098822-X (Version None)
Quarter: 2006Q3

REPORT INFORMATION
  Report Type: 
  Country: None (occurrence: None)
  Receive Date: 20060907
  Receipt Date: 20060824
  Transmission Date: 20061208
  Serious: Yes (Congenital Anomaly)
  Sender: FDA-Public Use
  Company Number: CA-ROCHE-460710

PATIENT
  Sex: Female

DRUGS (1)
  1. ISOTRETINOIN [Suspect]
     Route: 048

REACTIONS (4)
  - ABORTION INDUCED [None]
  - ANOMALY OF MIDDLE EAR CONGENITAL [None]
  - CONGENITAL ANOMALY OF INNER EAR [None]
  - DRUG EXPOSURE DURING PREGNANCY [None]
